FAERS Safety Report 10532785 (Version 1)
Quarter: 2014Q4

REPORT INFORMATION
  Report Type: Spontaneous
  Country: GR (occurrence: GR)
  Receive Date: 20141022
  Receipt Date: 20141022
  Transmission Date: 20150529
  Serious: Yes (Hospitalization)
  Sender: FDA-Public Use
  Company Number: GR-RANBAXY-2014R1-86574

PATIENT
  Age: 37 Year
  Sex: Female

DRUGS (1)
  1. AMOXICILLIN/CLAVULANIC [Suspect]
     Active Substance: AMOXICILLIN\CLAVULANIC ACID
     Indication: PERIODONTITIS
     Dosage: UNK
     Route: 048

REACTIONS (1)
  - Acute generalised exanthematous pustulosis [Recovering/Resolving]
